FAERS Safety Report 13896051 (Version 1)
Quarter: 2017Q3

REPORT INFORMATION
  Report Type: Spontaneous
  Country: FR (occurrence: FR)
  Receive Date: 20170823
  Receipt Date: 20170823
  Transmission Date: 20171127
  Serious: Yes (Other)
  Sender: FDA-Public Use
  Company Number: FR-LPDUSPRD-20171148

PATIENT
  Age: 83 Year
  Sex: Female

DRUGS (9)
  1. LOSARTAN. [Concomitant]
     Active Substance: LOSARTAN
     Dosage: UNKNOWN
     Route: 065
  2. FERINJECT [Suspect]
     Active Substance: FERRIC CARBOXYMALTOSE
     Dosage: 100 MG
     Route: 041
     Dates: start: 20170710, end: 20170717
  3. BISOPROLOL [Concomitant]
     Active Substance: BISOPROLOL
     Dosage: UNKNOWN
     Route: 065
  4. ZOCOR [Concomitant]
     Active Substance: SIMVASTATIN
     Dosage: UNKNOWN
     Route: 065
  5. LASILIX [Concomitant]
     Active Substance: FUROSEMIDE
     Dosage: UNKNOWN
     Route: 065
  6. THYROZOL [Concomitant]
     Active Substance: METHIMAZOLE
     Dosage: UNKNOWN
     Route: 065
  7. XARELTO [Concomitant]
     Active Substance: RIVAROXABAN
     Dosage: UNKNOWN
     Route: 065
  8. METFORMIN HYDROCHLORIDE. [Concomitant]
     Active Substance: METFORMIN HYDROCHLORIDE
     Dosage: UNKNOWN
     Route: 065
  9. LANZOR [Concomitant]
     Active Substance: LANSOPRAZOLE
     Dosage: UNKNOWN
     Route: 065

REACTIONS (6)
  - Chills [Recovered/Resolved]
  - Tachycardia [Recovered/Resolved]
  - Loss of consciousness [Recovered/Resolved]
  - Vomiting [Recovered/Resolved]
  - Hypoperfusion [Recovered/Resolved]
  - Livedo reticularis [Recovered/Resolved]

NARRATIVE: CASE EVENT DATE: 20170717
